FAERS Safety Report 13330692 (Version 1)
Quarter: 2017Q1

REPORT INFORMATION
  Report Type: Spontaneous
  Country: US (occurrence: US)
  Receive Date: 20170314
  Receipt Date: 20170314
  Transmission Date: 20170428
  Serious: No
  Sender: FDA-Public Use
  Company Number: US-TEVA-728968ACC

PATIENT
  Sex: Female
  Weight: 42 kg

DRUGS (1)
  1. DESIPRAMINE [Suspect]
     Active Substance: DESIPRAMINE
     Indication: NECK PAIN
     Dosage: 20 MILLIGRAM DAILY;

REACTIONS (2)
  - Blood glucose increased [Unknown]
  - Weight decreased [Unknown]
